FAERS Safety Report 10288399 (Version 3)
Quarter: 2014Q3

REPORT INFORMATION
  Report Type: Spontaneous
  Country: CA (occurrence: CA)
  Receive Date: 20140709
  Receipt Date: 20140818
  Transmission Date: 20150326
  Serious: Yes (Hospitalization, Other)
  Sender: FDA-Public Use
  Company Number: CA-PFIZER INC-2014189280

PATIENT
  Age: 59 Year
  Sex: Female

DRUGS (4)
  1. ALDACTONE [Suspect]
     Active Substance: SPIRONOLACTONE
     Indication: OEDEMA PERIPHERAL
     Dosage: 100 MG, 1X/DAY
     Route: 048
     Dates: start: 20140528
  2. LASIX [Suspect]
     Active Substance: FUROSEMIDE
     Indication: FLUID RETENTION
     Dosage: 40 MG, 2X/DAY
     Route: 048
     Dates: start: 20140528
  3. LASIX [Suspect]
     Active Substance: FUROSEMIDE
     Indication: OEDEMA PERIPHERAL
  4. ALDACTONE [Suspect]
     Active Substance: SPIRONOLACTONE
     Indication: FLUID RETENTION

REACTIONS (9)
  - Balance disorder [Recovering/Resolving]
  - Unresponsive to stimuli [Recovering/Resolving]
  - Decreased appetite [Recovering/Resolving]
  - Blood sodium decreased [Recovering/Resolving]
  - Coma [Recovering/Resolving]
  - Vomiting [Recovering/Resolving]
  - Malaise [Recovering/Resolving]
  - Disorientation [Recovering/Resolving]
  - Convulsion [Recovering/Resolving]

NARRATIVE: CASE EVENT DATE: 201407
